FAERS Safety Report 19674364 (Version 1)
Quarter: 2021Q3

REPORT INFORMATION
  Report Type: Spontaneous
  Country: US (occurrence: US)
  Receive Date: 20210806
  Receipt Date: 20210806
  Transmission Date: 20211014
  Serious: Yes (Hospitalization)
  Sender: FDA-Public Use
  Company Number: None

PATIENT
  Age: 52 Year
  Sex: Male

DRUGS (24)
  1. OPSUMIT [Suspect]
     Active Substance: MACITENTAN
     Indication: PULMONARY ARTERIAL HYPERTENSION
     Route: 048
     Dates: start: 20151104, end: 20210716
  2. AMIODARONE [Concomitant]
     Active Substance: AMIODARONE
  3. SILDENARIL [Concomitant]
  4. GLIPIZIDE. [Concomitant]
     Active Substance: GLIPIZIDE
  5. POTASSIUM CHLORIDE. [Concomitant]
     Active Substance: POTASSIUM CHLORIDE
  6. BISACODYL RECT SUPP [Concomitant]
  7. BACITRACIN ZINC TOP OINT [Concomitant]
  8. OXYCODONE [Concomitant]
     Active Substance: OXYCODONE
  9. NARCAN [Concomitant]
     Active Substance: NALOXONE HYDROCHLORIDE
  10. ALLOPURINOL. [Concomitant]
     Active Substance: ALLOPURINOL
  11. HYDRALAZINE [Concomitant]
     Active Substance: HYDRALAZINE HYDROCHLORIDE
  12. ATROPINE OPHT DROP [Concomitant]
  13. HALDOL [Concomitant]
     Active Substance: HALOPERIDOL
  14. CLEARLAX [Concomitant]
     Active Substance: POLYETHYLENE GLYCOL 3350
  15. TORSEMIDE. [Concomitant]
     Active Substance: TORSEMIDE
  16. MORPHINE [Concomitant]
     Active Substance: MORPHINE
  17. LORAZEPAM. [Concomitant]
     Active Substance: LORAZEPAM
  18. PHENOBARBITAL. [Concomitant]
     Active Substance: PHENOBARBITAL
  19. ALBUTEROL HFA [Concomitant]
     Active Substance: ALBUTEROL SULFATE
  20. PANTOPRAZOLE [Concomitant]
     Active Substance: PANTOPRAZOLE
  21. SENNA [Concomitant]
     Active Substance: SENNA LEAF\SENNOSIDES\SENNOSIDES A AND B
  22. LACTUOSE [Concomitant]
  23. TYLENOL RECT SUPP [Concomitant]
  24. CHLOROTHIAZIDE. [Concomitant]
     Active Substance: CHLOROTHIAZIDE

REACTIONS (10)
  - Scrotal oedema [None]
  - Right ventricular failure [None]
  - Fluid retention [None]
  - Decubitus ulcer [None]
  - Intestinal obstruction [None]
  - Cardiogenic shock [None]
  - Constipation [None]
  - Cardiac failure [None]
  - Thrombophlebitis [None]
  - Thrombosis [None]

NARRATIVE: CASE EVENT DATE: 20210711
